FAERS Safety Report 16883484 (Version 1)
Quarter: 2019Q4

REPORT INFORMATION
  Report Type: Spontaneous
  Country: IT (occurrence: IT)
  Receive Date: 20191004
  Receipt Date: 20191004
  Transmission Date: 20200122
  Serious: Yes (Hospitalization)
  Sender: FDA-Public Use
  Company Number: IT-SUN PHARMACEUTICAL INDUSTRIES LTD-2019RR-222640

PATIENT
  Age: 79 Year
  Sex: Female

DRUGS (6)
  1. ZANTIPRES [Concomitant]
     Active Substance: ZOFENOPRIL
     Indication: HYPERTENSION
     Dosage: ()
     Route: 065
  2. CITALOPRAM [Concomitant]
     Active Substance: CITALOPRAM HYDROBROMIDE
     Indication: DEPRESSION
     Dosage: 20 MILLIGRAM, UNK
     Route: 048
  3. MADOPAR 200 MG + 50 MG COMPRESSE DIVISIBILI [Concomitant]
     Active Substance: BENSERAZIDE HYDROCHLORIDE\LEVODOPA
     Indication: PARKINSON^S DISEASE
     Dosage: 1.5 DOSAGE FORM, UNK
     Route: 048
  4. DONEPEZIL. [Suspect]
     Active Substance: DONEPEZIL
     Indication: COGNITIVE DISORDER
     Dosage: 5 MILLIGRAM, DAILY
     Route: 048
     Dates: start: 20190906, end: 20190908
  5. VERAPAMIL [Concomitant]
     Active Substance: VERAPAMIL HYDROCHLORIDE
     Indication: HYPERTENSION
     Dosage: 240 MILLIGRAM, UNK
     Route: 048
  6. TICLOPIDINE [Concomitant]
     Active Substance: TICLOPIDINE
     Indication: THROMBOSIS PROPHYLAXIS
     Dosage: ()
     Route: 065

REACTIONS (4)
  - Hyponatraemic syndrome [Unknown]
  - Insomnia [Unknown]
  - Apraxia [Unknown]
  - Agitation [Unknown]

NARRATIVE: CASE EVENT DATE: 20190908
